FAERS Safety Report 15963041 (Version 5)
Quarter: 2019Q3

REPORT INFORMATION
  Report Type: Spontaneous
  Country: US (occurrence: US)
  Receive Date: 20190214
  Receipt Date: 20190823
  Transmission Date: 20191004
  Serious: Yes (Other)
  Sender: FDA-Public Use
  Company Number: US-ASTRAZENECA-2018SF13634

PATIENT
  Age: 440 Month
  Sex: Female
  Weight: 141.5 kg

DRUGS (41)
  1. FLONASE [Concomitant]
     Active Substance: FLUTICASONE PROPIONATE
  2. PAROXETINE. [Concomitant]
     Active Substance: PAROXETINE
  3. ACETAMINOPHEN. [Concomitant]
     Active Substance: ACETAMINOPHEN
  4. RESTORIL [Concomitant]
     Active Substance: TEMAZEPAM
  5. SENOKOT [Concomitant]
     Active Substance: SENNOSIDES
  6. MUCINEX [Concomitant]
     Active Substance: GUAIFENESIN
  7. PRILOSEC [Suspect]
     Active Substance: OMEPRAZOLE MAGNESIUM
     Indication: GASTROOESOPHAGEAL REFLUX DISEASE
     Route: 048
     Dates: start: 20080213, end: 20171104
  8. EFFEXOR [Concomitant]
     Active Substance: VENLAFAXINE HYDROCHLORIDE
  9. MONTELUKAST [Concomitant]
     Active Substance: MONTELUKAST SODIUM
  10. MOXIFLOXACIN. [Concomitant]
     Active Substance: MOXIFLOXACIN
  11. LORATADINE. [Concomitant]
     Active Substance: LORATADINE
  12. PAROXETINE. [Concomitant]
     Active Substance: PAROXETINE
  13. PRILOSEC [Suspect]
     Active Substance: OMEPRAZOLE MAGNESIUM
     Indication: GASTROOESOPHAGEAL REFLUX DISEASE
     Dosage: GENERIC
     Route: 065
     Dates: start: 201706
  14. PROTONIX [Suspect]
     Active Substance: PANTOPRAZOLE SODIUM
     Route: 065
     Dates: start: 200901, end: 20091118
  15. TUMS [Concomitant]
     Active Substance: CALCIUM CARBONATE
  16. PROZAC [Concomitant]
     Active Substance: FLUOXETINE HYDROCHLORIDE
  17. TRAZODONE [Concomitant]
     Active Substance: TRAZODONE HYDROCHLORIDE
  18. ALBUTEROL. [Concomitant]
     Active Substance: ALBUTEROL
  19. FLOVENT [Concomitant]
     Active Substance: FLUTICASONE PROPIONATE
  20. ZOFRAN [Concomitant]
     Active Substance: ONDANSETRON HYDROCHLORIDE
  21. DEPAKOTE [Concomitant]
     Active Substance: DIVALPROEX SODIUM
  22. VANCOMYCIN [Concomitant]
     Active Substance: VANCOMYCIN
  23. TEMAZEPAM. [Concomitant]
     Active Substance: TEMAZEPAM
  24. ROXICET [Concomitant]
     Active Substance: ACETAMINOPHEN\OXYCODONE HYDROCHLORIDE
  25. KLONOPIN [Concomitant]
     Active Substance: CLONAZEPAM
  26. PRILOSEC [Suspect]
     Active Substance: OMEPRAZOLE MAGNESIUM
     Indication: GASTROOESOPHAGEAL REFLUX DISEASE
     Route: 048
     Dates: start: 20080213, end: 20171104
  27. XANAX [Concomitant]
     Active Substance: ALPRAZOLAM
  28. FLEXERIL [Concomitant]
     Active Substance: CYCLOBENZAPRINE HYDROCHLORIDE
  29. EUCERIN [Concomitant]
     Active Substance: ENSULIZOLE\EUCERIN\OCTINOXATE\OCTISALATE\TITANIUM DIOXIDE\ZINC OXIDE
  30. LANSOPRAZOLE. [Concomitant]
     Active Substance: LANSOPRAZOLE
  31. LORATADINE. [Concomitant]
     Active Substance: LORATADINE
  32. DOCUSATE [Concomitant]
     Active Substance: DOCUSATE
  33. PAXIL [Concomitant]
     Active Substance: PAROXETINE HYDROCHLORIDE
  34. NYSTATIN. [Concomitant]
     Active Substance: NYSTATIN
  35. CLARITIN [Concomitant]
     Active Substance: LORATADINE
  36. SINGULAIR [Concomitant]
     Active Substance: MONTELUKAST SODIUM
  37. NEURONTIN [Concomitant]
     Active Substance: GABAPENTIN
  38. MIRALAX [Concomitant]
     Active Substance: POLYETHYLENE GLYCOL 3350
  39. PRILOSEC [Suspect]
     Active Substance: OMEPRAZOLE MAGNESIUM
     Indication: GASTROOESOPHAGEAL REFLUX DISEASE
     Dosage: GENERIC
     Route: 065
     Dates: start: 20111213
  40. PRILOSEC OTC [Suspect]
     Active Substance: OMEPRAZOLE MAGNESIUM
     Indication: GASTROOESOPHAGEAL REFLUX DISEASE
     Route: 048
     Dates: start: 200611, end: 201711
  41. PROTONIX [Suspect]
     Active Substance: PANTOPRAZOLE SODIUM
     Indication: GASTROOESOPHAGEAL REFLUX DISEASE
     Dosage: 1 X
     Route: 065

REACTIONS (5)
  - Renal failure [Unknown]
  - Nephrogenic anaemia [Unknown]
  - Renal injury [Unknown]
  - Chronic kidney disease [Not Recovered/Not Resolved]
  - Acute kidney injury [Not Recovered/Not Resolved]

NARRATIVE: CASE EVENT DATE: 200806
